FAERS Safety Report 6292387-2 (Version None)
Quarter: 2009Q3

REPORT INFORMATION
  Report Type: 
  Country: None (occurrence: None)
  Receive Date: 20090731
  Receipt Date: 20090722
  Transmission Date: 20100115
  Serious: Yes (Hospitalization)
  Sender: FDA-Public Use
  Company Number: PHHY2009CA29872

PATIENT
  Sex: Female

DRUGS (14)
  1. FEMARA [Suspect]
     Indication: BREAST CANCER METASTATIC
     Dosage: 2.5 MG/DAY
     Route: 048
     Dates: start: 20070911
  2. VENLAFAXINE HYDROCHLORIDE [Concomitant]
     Indication: DEPRESSION
     Dosage: 112.5 MG/DAY
     Route: 048
  3. OLANZAPINE [Concomitant]
     Indication: DEPRESSION
     Dosage: 2.5 MG/DAY
     Route: 048
  4. WARFARIN SODIUM [Concomitant]
     Dosage: 2MG/DAY
     Route: 048
  5. ETIDRONATE DISODIUM [Concomitant]
     Indication: SUPPLEMENTATION THERAPY
     Dosage: 400/500 MG
  6. SYMBICORT [Concomitant]
     Indication: ASTHMA
     Dosage: 200 MCG
  7. SPIRIVA [Concomitant]
     Indication: ASTHMA
  8. ALBUTEROL [Concomitant]
     Indication: ASTHMA
     Dosage: 100 MCG
  9. ATIVAN [Concomitant]
  10. ZYPREXA [Concomitant]
     Dosage: 2.5 MG HS
  11. DIDROVAL KIL [Concomitant]
  12. EFFEXOR [Concomitant]
     Dosage: 37.5 MG, QD
  13. SYMBICORT [Concomitant]
  14. VENTOLIN [Concomitant]

REACTIONS (11)
  - BREAST HAEMATOMA [None]
  - BREAST PAIN [None]
  - BREAST PROSTHESIS IMPLANTATION [None]
  - BREAST PROSTHESIS REMOVAL [None]
  - BREAST RECONSTRUCTION [None]
  - ERYTHEMA [None]
  - HAEMATOMA EVACUATION [None]
  - HYPOXIA [None]
  - INCISIONAL DRAINAGE [None]
  - INTERNATIONAL NORMALISED RATIO INCREASED [None]
  - PULMONARY EMBOLISM [None]
